FAERS Safety Report 16963171 (Version 2)
Quarter: 2019Q4

REPORT INFORMATION
  Report Type: Report from Study
  Country: FR (occurrence: FR)
  Receive Date: 20191025
  Receipt Date: 20191028
  Transmission Date: 20200122
  Serious: Yes (Death, Other)
  Sender: FDA-Public Use
  Company Number: FR-JAZZ-2019-FR-010817

PATIENT

DRUGS (1)
  1. DEFITELIO [Suspect]
     Active Substance: DEFIBROTIDE SODIUM
     Indication: PROPHYLAXIS
     Dosage: 23 MG/KG/DAY
     Dates: start: 20140130, end: 20140220

REACTIONS (8)
  - Graft versus host disease [Fatal]
  - Acute myeloid leukaemia recurrent [Unknown]
  - Intentional product use issue [Unknown]
  - Venoocclusive disease [Fatal]
  - Haemorrhage [Unknown]
  - Infection [Fatal]
  - Pulmonary toxicity [Fatal]
  - Nephropathy toxic [Fatal]

NARRATIVE: CASE EVENT DATE: 20140130
